FAERS Safety Report 12395181 (Version 2)
Quarter: 2016Q2

REPORT INFORMATION
  Report Type: Spontaneous
  Country: US (occurrence: US)
  Receive Date: 20160523
  Receipt Date: 20160531
  Transmission Date: 20160815
  Serious: Yes (Hospitalization)
  Sender: FDA-Public Use
  Company Number: US-ACTELION-A-US2016-136313

PATIENT
  Age: 54 Year
  Sex: Female
  Weight: 50.79 kg

DRUGS (9)
  1. LASIX [Concomitant]
     Active Substance: FUROSEMIDE
  2. DIGOXIN. [Concomitant]
     Active Substance: DIGOXIN
  3. ATRIPLA [Concomitant]
     Active Substance: EFAVIRENZ\EMTRICITABINE\TENOFOVIR DISOPROXIL FUMARATE
  4. SILDENAFIL. [Concomitant]
     Active Substance: SILDENAFIL
  5. K-DUR [Concomitant]
     Active Substance: POTASSIUM CHLORIDE
  6. VELETRI [Suspect]
     Active Substance: EPOPROSTENOL
     Dosage: UNK
     Route: 042
  7. LETAIRIS [Suspect]
     Active Substance: AMBRISENTAN
     Indication: PULMONARY ARTERIAL HYPERTENSION
     Dosage: 10 MG, QD
     Route: 065
     Dates: start: 20140814
  8. VELETRI [Suspect]
     Active Substance: EPOPROSTENOL
     Indication: PULMONARY ARTERIAL HYPERTENSION
     Dosage: UNK
     Route: 042
     Dates: start: 20140807
  9. COREG [Concomitant]
     Active Substance: CARVEDILOL

REACTIONS (3)
  - Dyspnoea [Recovered/Resolved]
  - Drug dose omission [Recovered/Resolved]
  - Device dislocation [Recovered/Resolved]

NARRATIVE: CASE EVENT DATE: 20160415
